FAERS Safety Report 21802135 (Version 2)
Quarter: 2025Q1

REPORT INFORMATION
  Report Type: Spontaneous
  Country: US (occurrence: US)
  Receive Date: 20221230
  Receipt Date: 20250218
  Transmission Date: 20250409
  Serious: No
  Sender: MERZ
  Company Number: US-ACORDA-ACO_172735_2022

PATIENT
  Age: 74 Year
  Sex: Female
  Weight: 65.76 kg

DRUGS (11)
  1. INBRIJA [Suspect]
     Active Substance: LEVODOPA
     Indication: Parkinson^s disease
     Dates: start: 202404
  2. INBRIJA [Suspect]
     Active Substance: LEVODOPA
     Indication: On and off phenomenon
  3. INBRIJA [Suspect]
     Active Substance: LEVODOPA
  4. INBRIJA [Suspect]
     Active Substance: LEVODOPA
  5. INBRIJA [Suspect]
     Active Substance: LEVODOPA
     Dates: start: 20240404
  6. RYTARY [Concomitant]
     Active Substance: CARBIDOPA\LEVODOPA
     Indication: Product used for unknown indication
     Dosage: 61.25/245 MILLIGRAM, QID
     Route: 065
  7. GOCOVRI [Concomitant]
     Active Substance: AMANTADINE
     Indication: Product used for unknown indication
     Route: 065
  8. CBD AKTIV [Concomitant]
     Indication: Product used for unknown indication
     Route: 065
  9. GLYCOPYRROLATE [Concomitant]
     Active Substance: GLYCOPYRROLATE
     Indication: Product used for unknown indication
     Route: 065
  10. GEMTESA [Concomitant]
     Active Substance: VIBEGRON
     Indication: Product used for unknown indication
     Route: 065
  11. RASAGILINE [Concomitant]
     Active Substance: RASAGILINE
     Indication: Product used for unknown indication
     Route: 065

REACTIONS (15)
  - Dyspnoea [Unknown]
  - Night sweats [Unknown]
  - Choking [Not Recovered/Not Resolved]
  - Parkinson^s disease [Unknown]
  - Unevaluable event [Not Recovered/Not Resolved]
  - Expulsion of medication [Not Recovered/Not Resolved]
  - Patient dissatisfaction with device [Not Recovered/Not Resolved]
  - Device difficult to use [Not Recovered/Not Resolved]
  - Wrong technique in product usage process [Unknown]
  - Device delivery system issue [Not Recovered/Not Resolved]
  - Device occlusion [Not Recovered/Not Resolved]
  - Device issue [Unknown]
  - Drug ineffective [Not Recovered/Not Resolved]
  - Cough [Not Recovered/Not Resolved]
  - Dyskinesia [Not Recovered/Not Resolved]

NARRATIVE: CASE EVENT DATE: 20250114
